FAERS Safety Report 11127936 (Version 1)
Quarter: 2015Q2

REPORT INFORMATION
  Report Type: Spontaneous
  Country: US (occurrence: US)
  Receive Date: 20150521
  Receipt Date: 20150521
  Transmission Date: 20150821
  Serious: Yes (Other)
  Sender: FDA-Public Use
  Company Number: US-TEVA-563221USA

PATIENT
  Age: 48 Year
  Sex: Male

DRUGS (2)
  1. COPAXONE [Suspect]
     Active Substance: GLATIRAMER ACETATE
     Dates: end: 201411
  2. COPAXONE [Suspect]
     Active Substance: GLATIRAMER ACETATE
     Dates: start: 201411, end: 201501

REACTIONS (3)
  - Injection site atrophy [Unknown]
  - Major depression [Unknown]
  - Therapy change [Unknown]

NARRATIVE: CASE EVENT DATE: 201411
